FAERS Safety Report 25130092 (Version 1)
Quarter: 2025Q1

REPORT INFORMATION
  Report Type: Spontaneous
  Country: BR (occurrence: BR)
  Receive Date: 20250327
  Receipt Date: 20250327
  Transmission Date: 20250409
  Serious: Yes (Hospitalization, Other)
  Sender: NOVARTIS
  Company Number: BR-002147023-NVSC2025BR048653

PATIENT
  Age: 78 Year
  Sex: Male
  Weight: 77 kg

DRUGS (5)
  1. GLIVEC [Suspect]
     Active Substance: IMATINIB MESYLATE
     Indication: Chronic myeloid leukaemia
     Dosage: 1 DOSAGE FORM, QD
     Route: 065
     Dates: start: 2018
  2. AMIODARONE HYDROCHLORIDE [Concomitant]
     Active Substance: AMIODARONE HYDROCHLORIDE
     Indication: Arrhythmia
     Route: 065
  3. CARVEDILOL [Concomitant]
     Active Substance: CARVEDILOL
     Indication: Blood pressure measurement
     Route: 065
  4. GLICLAZIDE [Concomitant]
     Active Substance: GLICLAZIDE
     Indication: Diabetes mellitus
     Route: 065
  5. JARDIANCE [Concomitant]
     Active Substance: EMPAGLIFLOZIN
     Indication: Diabetes mellitus
     Route: 065

REACTIONS (4)
  - Blood potassium increased [Unknown]
  - Blood creatinine increased [Unknown]
  - Hydronephrosis [Unknown]
  - Dysuria [Unknown]

NARRATIVE: CASE EVENT DATE: 20250201
